FAERS Safety Report 5499329-8 (Version None)
Quarter: 2007Q4

REPORT INFORMATION
  Report Type: 
  Country: None (occurrence: None)
  Receive Date: 20071026
  Receipt Date: 20071017
  Transmission Date: 20080405
  Serious: Yes (Hospitalization)
  Sender: FDA-Public Use
  Company Number: JP-ASTRAZENECA-2007AP06604

PATIENT
  Sex: Female

DRUGS (3)
  1. CRESTOR [Suspect]
     Indication: HYPERLIPIDAEMIA
     Route: 048
     Dates: start: 20070201, end: 20070301
  2. CALBLOCK [Suspect]
     Route: 048
     Dates: start: 20061201, end: 20070501
  3. CALBLOCK [Suspect]
     Route: 048
     Dates: start: 20070501

REACTIONS (1)
  - LIVER DISORDER [None]
